FAERS Safety Report 7437049-0 (Version None)
Quarter: 2011Q2

REPORT INFORMATION
  Report Type: 
  Country: None (occurrence: None)
  Receive Date: 20110426
  Receipt Date: 20110412
  Transmission Date: 20111010
  Serious: Yes (Hospitalization, Other)
  Sender: FDA-Public Use
  Company Number: PHEH2006US11216

PATIENT
  Sex: Female

DRUGS (11)
  1. FENTANYL [Concomitant]
  2. LISINOPRIL [Concomitant]
  3. AFRIN [Concomitant]
  4. HYDROMORPHONE [Concomitant]
  5. PROMETHAZINE [Concomitant]
  6. QVAR 40 [Concomitant]
  7. AREDIA [Suspect]
  8. TAMOXIFEN [Concomitant]
  9. ZOMETA [Suspect]
  10. ALBUTEROL [Concomitant]
  11. ALBUTEROL [Concomitant]

REACTIONS (36)
  - GINGIVAL ERYTHEMA [None]
  - BRUXISM [None]
  - HYPERLIPIDAEMIA [None]
  - SKIN ULCER [None]
  - TOOTH INJURY [None]
  - JOINT SPRAIN [None]
  - GINGIVAL INFECTION [None]
  - SENSITIVITY OF TEETH [None]
  - SEASONAL ALLERGY [None]
  - GINGIVAL PAIN [None]
  - GENERAL PHYSICAL HEALTH DETERIORATION [None]
  - DECREASED INTEREST [None]
  - OSTEOARTHRITIS [None]
  - BONE LESION [None]
  - GINGIVAL SWELLING [None]
  - ANXIETY [None]
  - ARTHRITIS [None]
  - OSTEOMYELITIS [None]
  - OSTEONECROSIS OF JAW [None]
  - PAIN [None]
  - RADIUS FRACTURE [None]
  - MUSCULOSKELETAL PAIN [None]
  - CONTUSION [None]
  - HYPERTENSION [None]
  - ABSCESS [None]
  - DEVICE MALFUNCTION [None]
  - FALL [None]
  - GINGIVAL OEDEMA [None]
  - CHEST PAIN [None]
  - MUSCLE STRAIN [None]
  - METASTASES TO BONE [None]
  - URINARY INCONTINENCE [None]
  - LACERATION [None]
  - ASTHMA [None]
  - ALVEOLAR OSTEITIS [None]
  - RETINOPATHY [None]
